FAERS Safety Report 5624599-2 (Version None)
Quarter: 2008Q1

REPORT INFORMATION
  Report Type: 
  Country: None (occurrence: None)
  Receive Date: 20080213
  Receipt Date: 20080131
  Transmission Date: 20080703
  Serious: Yes (Life-Threatening)
  Sender: FDA-Public Use
  Company Number: ZA-GILEAD-2007-0014392

PATIENT
  Sex: Female
  Weight: 75.6 kg

DRUGS (6)
  1. TRUVADA [Suspect]
     Indication: HIV INFECTION
     Route: 048
     Dates: start: 20060908, end: 20061011
  2. TMC114 [Suspect]
     Indication: HIV INFECTION
     Route: 048
     Dates: start: 20060908, end: 20061011
  3. RITONAVIR [Suspect]
     Indication: HIV INFECTION
     Route: 048
     Dates: start: 20060908, end: 20061011
  4. SINUMAX ALLERGY SINUS [Concomitant]
     Dates: start: 20060922
  5. OXYMETAZOLINE HYDROCHLORIDE [Concomitant]
  6. CYPROHEPTADINE HYDROCHLORIDE [Concomitant]

REACTIONS (1)
  - TRANSAMINASES INCREASED [None]
